FAERS Safety Report 24706859 (Version 1)
Quarter: 2024Q4

REPORT INFORMATION
  Report Type: Spontaneous
  Country: FI (occurrence: FI)
  Receive Date: 20241206
  Receipt Date: 20241206
  Transmission Date: 20250115
  Serious: Yes (Other)
  Sender: CSL BEHRING
  Company Number: FI-BEH-2024186778

PATIENT
  Sex: Female

DRUGS (16)
  1. BERINERT [Suspect]
     Active Substance: HUMAN C1-ESTERASE INHIBITOR
     Dosage: UNK
     Route: 065
     Dates: start: 2013
  2. BERINERT [Suspect]
     Active Substance: HUMAN C1-ESTERASE INHIBITOR
     Dosage: UNK
     Route: 065
     Dates: start: 2013
  3. BERINERT [Suspect]
     Active Substance: HUMAN C1-ESTERASE INHIBITOR
     Dosage: UNK
     Route: 065
     Dates: start: 2017
  4. BERINERT [Suspect]
     Active Substance: HUMAN C1-ESTERASE INHIBITOR
     Dosage: UNK
     Route: 065
     Dates: start: 2017
  5. BERINERT [Suspect]
     Active Substance: HUMAN C1-ESTERASE INHIBITOR
     Dosage: 3500 IU ((1PC 1500IU, THE REST 500IU), TWICE A WEEK (WEDNESDAY AND SUNDAY)
     Route: 065
  6. BERINERT [Suspect]
     Active Substance: HUMAN C1-ESTERASE INHIBITOR
     Dosage: 3500 IU ((1PC 1500IU, THE REST 500IU), TWICE A WEEK (WEDNESDAY AND SUNDAY)
     Route: 065
  7. BERINERT [Suspect]
     Active Substance: HUMAN C1-ESTERASE INHIBITOR
     Dosage: 3500 IU/TIME ((1PC 1500IU, THE REST 500IU), TWICE A WEEK (WEDNESDAY AND SUNDAY)
     Route: 065
  8. BERINERT [Suspect]
     Active Substance: HUMAN C1-ESTERASE INHIBITOR
     Dosage: 3500 IU/TIME ((1PC 1500IU, THE REST 500IU), TWICE A WEEK (WEDNESDAY AND SUNDAY)
     Route: 065
  9. BERINERT [Suspect]
     Active Substance: HUMAN C1-ESTERASE INHIBITOR
     Dosage: UNK
     Route: 065
     Dates: start: 2013
  10. BERINERT [Suspect]
     Active Substance: HUMAN C1-ESTERASE INHIBITOR
     Dosage: UNK
     Route: 065
     Dates: start: 2013
  11. BERINERT [Suspect]
     Active Substance: HUMAN C1-ESTERASE INHIBITOR
     Dosage: UNK
     Route: 065
     Dates: start: 2017
  12. BERINERT [Suspect]
     Active Substance: HUMAN C1-ESTERASE INHIBITOR
     Dosage: UNK
     Route: 065
     Dates: start: 2017
  13. BERINERT [Suspect]
     Active Substance: HUMAN C1-ESTERASE INHIBITOR
     Dosage: 3500 IU /TIME((1PC 1500IU, THE REST 500IU), TWICE A WEEK (WEDNESDAY AND SUNDAY)
     Route: 065
     Dates: start: 2017
  14. BERINERT [Suspect]
     Active Substance: HUMAN C1-ESTERASE INHIBITOR
     Dosage: 3500 IU /TIME((1PC 1500IU, THE REST 500IU), TWICE A WEEK (WEDNESDAY AND SUNDAY)
     Route: 065
     Dates: start: 2017
  15. BERINERT [Suspect]
     Active Substance: HUMAN C1-ESTERASE INHIBITOR
     Dosage: 3500 IU ((1PC 1500IU, THE REST 500IU), TWICE A WEEK (WEDNESDAY AND SUNDAY)
     Route: 065
     Dates: start: 2017
  16. BERINERT [Suspect]
     Active Substance: HUMAN C1-ESTERASE INHIBITOR
     Dosage: 3500 IU ((1PC 1500IU, THE REST 500IU), TWICE A WEEK (WEDNESDAY AND SUNDAY)
     Route: 065
     Dates: start: 2017

REACTIONS (3)
  - Drug ineffective [Unknown]
  - Unevaluable event [Not Recovered/Not Resolved]
  - Stress [Unknown]
